FAERS Safety Report 10669279 (Version 1)
Quarter: 2014Q4

REPORT INFORMATION
  Report Type: Spontaneous
  Country: CH (occurrence: CH)
  Receive Date: 20141222
  Receipt Date: 20141222
  Transmission Date: 20150529
  Serious: Yes (Hospitalization)
  Sender: FDA-Public Use
  Company Number: CH-TEVA-530024ISR

PATIENT
  Age: 80 Year
  Sex: Male

DRUGS (13)
  1. METOLAZON 5 MG TABLET [Suspect]
     Active Substance: METOLAZONE
     Dosage: 1.4286 MILLIGRAM DAILY;
     Route: 048
     Dates: start: 201410, end: 20141111
  2. ALDACTONE [Suspect]
     Active Substance: SPIRONOLACTONE
     Dosage: 25 MILLIGRAM DAILY;
     Route: 065
  3. TRIATEC 2.5 MG KAPSELN [Suspect]
     Active Substance: RAMIPRIL
     Dosage: 2.5 MILLIGRAM DAILY;
     Route: 048
  4. ASPIRIN CARDIO [Concomitant]
     Active Substance: ASPIRIN
     Dosage: CONTINUING
     Route: 065
  5. CORDARONE [Concomitant]
     Active Substance: AMIODARONE HYDROCHLORIDE
     Dosage: CONTINUING
     Route: 065
  6. ATORVASTATIN [Concomitant]
     Active Substance: ATORVASTATIN
     Dosage: CONTINUING
     Route: 065
  7. PANTOZOL [Concomitant]
     Active Substance: PANTOPRAZOLE SODIUM
     Dosage: CONTINUING
     Route: 065
  8. CARVEDILOL-MEPHA 3.125 MG [Suspect]
     Active Substance: CARVEDILOL
     Dosage: 3.125 MILLIGRAM DAILY;
     Route: 048
     Dates: end: 201411
  9. TOREM [Suspect]
     Active Substance: TORSEMIDE
     Dosage: 20 MILLIGRAM DAILY;
     Route: 065
  10. TRESIBA [Concomitant]
     Active Substance: INSULIN DEGLUDEC
     Dosage: CONTINUING
     Route: 065
  11. DANCOR [Concomitant]
     Active Substance: NICORANDIL
     Dosage: CONTINUING
     Route: 065
  12. DUODART [Concomitant]
     Active Substance: DUTASTERIDE\TAMSULOSIN
     Dosage: CONTINUING
     Route: 065
  13. NOVORAPID [Concomitant]
     Active Substance: INSULIN ASPART
     Route: 065

REACTIONS (5)
  - Fall [Recovered/Resolved]
  - Renal impairment [Unknown]
  - Presyncope [Recovered/Resolved]
  - Orthostatic hypotension [Recovered/Resolved]
  - Dehydration [Recovered/Resolved]

NARRATIVE: CASE EVENT DATE: 201411
